FAERS Safety Report 6068954-8 (Version None)
Quarter: 2009Q1

REPORT INFORMATION
  Report Type: 
  Country: None (occurrence: None)
  Receive Date: 20090206
  Receipt Date: 20090127
  Transmission Date: 20090719
  Serious: Yes (Death, Hospitalization)
  Sender: FDA-Public Use
  Company Number: PHHO2009AR01401

PATIENT
  Sex: Male
  Weight: 79 kg

DRUGS (4)
  1. ALISKIREN ALI+TAB [Suspect]
     Indication: ACUTE CORONARY SYNDROME
     Dosage: CODE NOT BROKEN
     Route: 048
     Dates: start: 20090112, end: 20090123
  2. VALSARTAN [Suspect]
     Indication: ACUTE CORONARY SYNDROME
     Dosage: CODE NOT BROKEN
     Route: 048
     Dates: start: 20090112, end: 20090123
  3. ASPIRIN [Concomitant]
  4. CLOPIDOGREL [Concomitant]

REACTIONS (10)
  - AGITATION [None]
  - CEREBRAL HAEMORRHAGE [None]
  - DISORIENTATION [None]
  - ECCHYMOSIS [None]
  - GINGIVAL BLEEDING [None]
  - IDIOPATHIC THROMBOCYTOPENIC PURPURA [None]
  - MOVEMENT DISORDER [None]
  - PETECHIAE [None]
  - RECTAL HAEMORRHAGE [None]
  - THROMBOCYTOPENIA [None]
